FAERS Safety Report 4737062-8 (Version None)
Quarter: 2005Q3

REPORT INFORMATION
  Report Type: 
  Country: None (occurrence: None)
  Receive Date: 20050804
  Receipt Date: 20050802
  Transmission Date: 20060218
  Serious: Yes (Death, Hospitalization)
  Sender: FDA-Public Use
  Company Number: LTI2005A00143

PATIENT
  Age: 73 Year
  Sex: Male

DRUGS (11)
  1. OGAST [Suspect]
     Dosage: 15 MG (15 MG, 1 IN 1 D) ORAL
     Route: 048
  2. AMIODARONE HYDROCHLORIDE [Suspect]
     Dosage: ORAL
     Route: 048
  3. AMLOR                (AMLODIPINE BENSILATE) [Suspect]
     Indication: HYPERTENSION
     Dosage: 5 MG (5 MG, 1 IN 1D) ORAL
     Route: 048
  4. IMMUCYST (BCG VACCINE) [Suspect]
     Indication: BLADDER CANCER
     Dosage: (1 DF, 1 IN 1 SEC) INTRAVESICAL
     Route: 043
     Dates: start: 20050307, end: 20050418
  5. PRAVASTATIN [Suspect]
     Dosage: 20 MG (20 MG, 1 IN 1 D) ORAL
     Route: 048
  6. PLAVIX [Suspect]
  7. CORVASAL  (MOLSIDOMINE) [Concomitant]
  8. COMBIVENT [Concomitant]
  9. SERETIDE DISKUS           (SERETIDE MITE) [Concomitant]
  10. ZOLPIDEM G GAM              (ZOLPIDEM) [Concomitant]
  11. ALPRAZOLAM [Concomitant]

REACTIONS (9)
  - BLADDER CANCER [None]
  - GAMMA-GLUTAMYLTRANSFERASE INCREASED [None]
  - HYDRONEPHROSIS [None]
  - HYPOALBUMINAEMIA [None]
  - HYPOXIA [None]
  - LUNG DISORDER [None]
  - PNEUMONIA [None]
  - RESPIRATORY DISORDER [None]
  - URETHRAL DISORDER [None]
